FAERS Safety Report 10169015 (Version 1)
Quarter: 2014Q2

REPORT INFORMATION
  Report Type: Spontaneous
  Country: US (occurrence: None)
  Receive Date: 20140509
  Receipt Date: 20140509
  Transmission Date: 20141212
  Serious: Yes (Other)
  Sender: FDA-Public Use
  Company Number: UTC-048226

PATIENT
  Age: 36 Year
  Sex: Female
  Weight: 106.5 kg

DRUGS (3)
  1. REMODULIN [Suspect]
     Indication: SYSTEMIC LUPUS ERYTHEMATOSUS
     Dosage: 92.16 UG/KG (0.064 UG/KG 1 IN 1 MIN) INTRAVENOUS DRIP
     Route: 041
     Dates: start: 20070401
  2. PREDNISONE(PREDNISONE)(PREDNISONE) [Suspect]
  3. COUMADIN(WARFARIN SODIUM) [Concomitant]

REACTIONS (1)
  - Spinal disorder [None]
